FAERS Safety Report 9371109 (Version 1)
Quarter: 2013Q2

REPORT INFORMATION
  Report Type: Spontaneous
  Country: US (occurrence: None)
  Receive Date: 20130626
  Receipt Date: 20130626
  Transmission Date: 20140414
  Serious: Yes (Disabling)
  Sender: FDA-Public Use
  Company Number: None

PATIENT
  Sex: Female
  Weight: 54.43 kg

DRUGS (25)
  1. ALESSE [Suspect]
     Indication: MENORRHAGIA
     Route: 048
     Dates: start: 2003, end: 2003
  2. ALESSE [Suspect]
     Indication: HAEMORRHAGE
     Route: 048
     Dates: start: 2003, end: 2003
  3. ALESSE [Suspect]
     Indication: PAIN
     Route: 048
     Dates: start: 2003, end: 2003
  4. CALCIUM/VITAMIN D [Concomitant]
  5. DILTIAZEM  ESTRPGENS CONJUGATED [Concomitant]
  6. HYDROCHLOROTHIAZIDE [Concomitant]
  7. LORATAZDINE [Concomitant]
  8. CLOTRIMAZOLE TOP CREAM [Concomitant]
  9. HYDROCORTISONE CREAM [Concomitant]
  10. BUSPIRONE [Concomitant]
  11. GABAPENTIN [Concomitant]
  12. RANITIDINE [Concomitant]
  13. SIMETHICONE [Concomitant]
  14. DILTIAZEM [Concomitant]
  15. DOCASATE [Concomitant]
  16. CALCIUM [Concomitant]
  17. ESTROGEN CONJUGATED [Concomitant]
  18. HYDROCHLOROTHIAZIDE [Concomitant]
  19. HYDROCODONE [Concomitant]
  20. ACETAMINOPHEN [Concomitant]
  21. HYDROXYZINE [Concomitant]
  22. HYDROCHLOROTHIAZIDE [Concomitant]
  23. FLUOXETINE [Concomitant]
  24. ALESSE [Concomitant]
  25. FELODIPINE [Concomitant]

REACTIONS (4)
  - Gingival swelling [None]
  - Tooth loss [None]
  - Ocular icterus [None]
  - Product quality issue [None]
